FAERS Safety Report 21405274 (Version 3)
Quarter: 2023Q1

REPORT INFORMATION
  Report Type: Other
  Country: US (occurrence: None)
  Receive Date: 20221004
  Receipt Date: 20230214
  Transmission Date: 20230418
  Serious: Yes (Hospitalization)
  Sender: FDA-Public Use
  Company Number: US-ROCHE-3187144

PATIENT
  Age: 64 Year
  Sex: Female
  Weight: 64.922 kg

DRUGS (6)
  1. OCREVUS [Suspect]
     Active Substance: OCRELIZUMAB
     Indication: Secondary progressive multiple sclerosis
     Dosage: NO
     Route: 042
     Dates: start: 2018
  2. PREVACID [Concomitant]
     Active Substance: LANSOPRAZOLE
  3. VENTOLIN [Concomitant]
     Active Substance: ALBUTEROL SULFATE
  4. TORSEMIDE [Concomitant]
     Active Substance: TORSEMIDE
  5. NALTREXONE [Concomitant]
     Active Substance: NALTREXONE
  6. OXYBUTYNIN [Concomitant]
     Active Substance: OXYBUTYNIN

REACTIONS (4)
  - Gait disturbance [Unknown]
  - Blood sodium decreased [Recovered/Resolved]
  - Urinary tract infection [Recovered/Resolved]
  - Asthenia [Recovered/Resolved]

NARRATIVE: CASE EVENT DATE: 20220727
